FAERS Safety Report 13494386 (Version 2)
Quarter: 2017Q3

REPORT INFORMATION
  Report Type: Report from Study
  Country: US (occurrence: US)
  Receive Date: 20170428
  Receipt Date: 20170804
  Transmission Date: 20171127
  Serious: Yes (Hospitalization, Other)
  Sender: FDA-Public Use
  Company Number: PHEH2017US012353

PATIENT
  Age: 51 Year
  Sex: Female
  Weight: 94.79 kg

DRUGS (4)
  1. GILENYA [Suspect]
     Active Substance: FINGOLIMOD HYDROCHLORIDE
     Indication: MULTIPLE SCLEROSIS
     Dosage: 0.5 MG, QD
     Route: 048
     Dates: start: 20160104, end: 201703
  2. AMITRIPTYLINE [Concomitant]
     Active Substance: AMITRIPTYLINE
     Indication: PRODUCT USED FOR UNKNOWN INDICATION
     Dosage: 25 MG, QD (AT BEDTIME)
     Route: 048
  3. GILENYA [Suspect]
     Active Substance: FINGOLIMOD HYDROCHLORIDE
     Dosage: 0.5 MG, QD
     Route: 048
  4. VITAMIN D2 [Concomitant]
     Active Substance: ERGOCALCIFEROL
     Indication: PRODUCT USED FOR UNKNOWN INDICATION
     Dosage: 5 DF (CAPSULES), QW
     Route: 048

REACTIONS (13)
  - Balance disorder [Recovering/Resolving]
  - Multiple sclerosis relapse [Unknown]
  - Sleep disorder [Unknown]
  - Fall [Unknown]
  - Limb discomfort [Unknown]
  - Gait inability [Recovering/Resolving]
  - Vision blurred [Recovering/Resolving]
  - Fatigue [Unknown]
  - Muscular weakness [Unknown]
  - Ankyloglossia congenital [Unknown]
  - Nocturia [Unknown]
  - Overweight [Unknown]
  - Pain [Unknown]

NARRATIVE: CASE EVENT DATE: 201703
